FAERS Safety Report 15246207 (Version 3)
Quarter: 2020Q4

REPORT INFORMATION
  Report Type: Spontaneous
  Country: US (occurrence: US)
  Receive Date: 20180806
  Receipt Date: 20201230
  Transmission Date: 20210113
  Serious: Yes (Hospitalization, Other)
  Sender: FDA-Public Use
  Company Number: US-ELI_LILLY_AND_COMPANY-US201808000599

PATIENT
  Age: 42 Year
  Sex: Male

DRUGS (4)
  1. HUMALOG [Suspect]
     Active Substance: INSULIN LISPRO
     Dosage: UNK UNK, UNKNOWN
     Route: 065
  2. HUMALOG [Suspect]
     Active Substance: INSULIN LISPRO
     Dosage: UNK UNK, UNKNOWN
     Route: 065
  3. HUMALOG [Suspect]
     Active Substance: INSULIN LISPRO
     Indication: TYPE 1 DIABETES MELLITUS
     Dosage: UNK UNK, UNKNOWN
     Route: 065
  4. HUMALOG [Suspect]
     Active Substance: INSULIN LISPRO
     Dosage: 29 U, DAILY
     Route: 065

REACTIONS (8)
  - Craniocerebral injury [Unknown]
  - Road traffic accident [Unknown]
  - Blood glucose decreased [Recovered/Resolved]
  - Rib fracture [Unknown]
  - Memory impairment [Unknown]
  - Craniocerebral injury [Unknown]
  - Loss of consciousness [Unknown]
  - Accident [Unknown]

NARRATIVE: CASE EVENT DATE: 201206
